FAERS Safety Report 14825869 (Version 1)
Quarter: 2018Q2

REPORT INFORMATION
  Report Type: Spontaneous
  Country: US (occurrence: US)
  Receive Date: 20180430
  Receipt Date: 20180430
  Transmission Date: 20180711
  Serious: No
  Sender: FDA-Public Use
  Company Number: US-PFIZER INC-2018170101

PATIENT
  Age: 36 Year
  Sex: Female

DRUGS (1)
  1. XELJANZ XR [Suspect]
     Active Substance: TOFACITINIB CITRATE
     Dosage: 11 MG, UNSPECIFIED FREQUENCY

REACTIONS (7)
  - Joint swelling [Unknown]
  - Joint effusion [Unknown]
  - Joint noise [Unknown]
  - Joint warmth [Unknown]
  - Joint stiffness [Unknown]
  - Erythema [Unknown]
  - Arthropathy [Unknown]
